FAERS Safety Report 12489672 (Version 1)
Quarter: 2016Q2

REPORT INFORMATION
  Report Type: Spontaneous
  Country: DE (occurrence: DE)
  Receive Date: 20160622
  Receipt Date: 20160622
  Transmission Date: 20160815
  Serious: Yes (Death)
  Sender: FDA-Public Use
  Company Number: DE-BAYER-2016-119681

PATIENT
  Age: 89 Year
  Sex: Male
  Weight: 90 kg

DRUGS (10)
  1. ASPIRIN. [Suspect]
     Active Substance: ASPIRIN
     Indication: PERIPHERAL ARTERIAL OCCLUSIVE DISEASE
     Dosage: 100 MG, UNK
     Route: 048
  2. APIXABAN [Suspect]
     Active Substance: APIXABAN
     Indication: ATRIAL FIBRILLATION
     Dosage: 2.5 MG, UNK
     Route: 048
     Dates: start: 20160330
  3. TAMSULOSIN [Concomitant]
     Active Substance: TAMSULOSIN
     Dosage: 0.4 MG, QD
  4. PANTOPRAZOLE [Concomitant]
     Active Substance: PANTOPRAZOLE SODIUM
     Dosage: 20 MG, QD
  5. SIMVASTATIN STADA [Concomitant]
     Dosage: 20 MG, QD
  6. PROTAPHANE [Concomitant]
     Active Substance: INSULIN HUMAN
  7. PREDNISOLON [PREDNISOLONE] [Concomitant]
     Dosage: 5 MG, QD
  8. DIGIMED [Concomitant]
     Active Substance: DIGOXIN
     Dosage: 0.07 MG, QD
  9. TORASEMID AL [Concomitant]
     Dosage: 10 MG, QD
  10. BISOPROLOL [BISOPROLOL] [Concomitant]
     Dosage: 2.5 MG, QD

REACTIONS (3)
  - Gastric mucosal lesion [Fatal]
  - Iron deficiency anaemia [Fatal]
  - Large intestinal haemorrhage [Fatal]

NARRATIVE: CASE EVENT DATE: 2016
